FAERS Safety Report 18184201 (Version 6)
Quarter: 2025Q4

REPORT INFORMATION
  Report Type: Spontaneous
  Country: EU (occurrence: EU)
  Receive Date: 20200824
  Receipt Date: 20251119
  Transmission Date: 20260118
  Serious: Yes (Death, Other)
  Sender: AUROBINDO
  Company Number: EU-NOVPHSZ-GXKR2004IT04609

PATIENT
  Age: 45 Year
  Sex: Female

DRUGS (58)
  1. DIAZEPAM [Suspect]
     Active Substance: DIAZEPAM
     Indication: Hallucination
     Dosage: UNK UNK, ONCE A DAY
     Route: 065
     Dates: start: 20021009
  2. DIAZEPAM [Suspect]
     Active Substance: DIAZEPAM
     Indication: Agitation
  3. FUROSEMIDE [Suspect]
     Active Substance: FUROSEMIDE
     Indication: Oliguria
     Dosage: UNK
     Dates: start: 20021004, end: 20021015
  4. FUROSEMIDE [Suspect]
     Active Substance: FUROSEMIDE
     Indication: Renal impairment
  5. FUROSEMIDE [Suspect]
     Active Substance: FUROSEMIDE
     Indication: Oliguria
     Dosage: UNK
     Dates: start: 20021027, end: 20021106
  6. FUROSEMIDE [Suspect]
     Active Substance: FUROSEMIDE
     Dosage: UNK
     Route: 065
     Dates: start: 20021004, end: 20021015
  7. LEVOFLOXACIN HEMIHYDRATE [Suspect]
     Active Substance: LEVOFLOXACIN
     Indication: Pneumonia
     Dosage: 500 MILLIGRAM, DAILY
  8. LEVOFLOXACIN HEMIHYDRATE [Suspect]
     Active Substance: LEVOFLOXACIN
     Dosage: 500 MILLIGRAM, DAILY
     Dates: start: 20021004, end: 20021019
  9. OMEPRAZOLE [Suspect]
     Active Substance: OMEPRAZOLE
     Indication: Product used for unknown indication
     Dosage: 20 MILLIGRAM, DAILY
  10. OMEPRAZOLE [Suspect]
     Active Substance: OMEPRAZOLE
     Dosage: 20 MILLIGRAM, DAILY
     Dates: start: 20020927, end: 20021103
  11. RABEPRAZOLE [Suspect]
     Active Substance: RABEPRAZOLE
     Indication: Product used for unknown indication
     Dosage: UNK
     Route: 065
  12. PANTOPAN [Suspect]
     Active Substance: PANTOPRAZOLE SODIUM
     Indication: Prophylaxis
     Dosage: UNK
     Dates: start: 20021009, end: 20021106
  13. PANTOPAN [Suspect]
     Active Substance: PANTOPRAZOLE SODIUM
     Dosage: UNK
     Dates: start: 20021009, end: 20021103
  14. BETAMETHASONE [Suspect]
     Active Substance: BETAMETHASONE
     Indication: Product used for unknown indication
     Dosage: UNK
     Route: 065
     Dates: start: 20020927, end: 20020927
  15. BETAMETHASONE [Suspect]
     Active Substance: BETAMETHASONE
     Dosage: 8 MILLIGRAM
     Dates: start: 20021106, end: 20021110
  16. CALCIUM CARBONATE [Suspect]
     Active Substance: CALCIUM CARBONATE
     Indication: Product used for unknown indication
     Dosage: 1 GRAM
     Route: 065
  17. CALCIUM CARBONATE [Suspect]
     Active Substance: CALCIUM CARBONATE
     Indication: Agitation
     Dosage: 1 GRAM, DAILY
     Route: 065
     Dates: start: 20020927, end: 20020927
  18. CALCIUM CARBONATE [Suspect]
     Active Substance: CALCIUM CARBONATE
     Dosage: UNK
     Route: 065
  19. CALCIUM CARBONATE [Suspect]
     Active Substance: CALCIUM CARBONATE
     Dosage: UNK
  20. CALCIUM GLUCONATE [Suspect]
     Active Substance: CALCIUM GLUCONATE
     Indication: Product used for unknown indication
     Dosage: 1 GRAM
     Route: 065
     Dates: start: 20021009, end: 20021110
  21. CALCIUM GLUCONATE [Suspect]
     Active Substance: CALCIUM GLUCONATE
     Dosage: UNK
     Route: 065
  22. CALCIUM CARBONATE\ERGOCALCIFEROL\RETINOL [Suspect]
     Active Substance: CALCIUM CARBONATE\ERGOCALCIFEROL\RETINOL
     Indication: Product used for unknown indication
     Dosage: 0.5 MICROGRAM, DAILY
     Route: 065
  23. CALCIUM CARBONATE\ERGOCALCIFEROL\RETINOL [Suspect]
     Active Substance: CALCIUM CARBONATE\ERGOCALCIFEROL\RETINOL
     Dosage: 0.5 MICROGRAM, DAILY, (AT 08.00 HOURS)
     Route: 065
     Dates: start: 20020927, end: 20021106
  24. CANRENOIC ACID [Suspect]
     Active Substance: CANRENOIC ACID
     Indication: Renal impairment
     Dosage: UNK
     Route: 065
  25. CANRENOIC ACID [Suspect]
     Active Substance: CANRENOIC ACID
     Dosage: UNK
     Dates: start: 20021004, end: 20021015
  26. CEFACLOR [Suspect]
     Active Substance: CEFACLOR
     Indication: Oral candidiasis
     Dosage: UNK
     Route: 065
  27. CEFACLOR [Suspect]
     Active Substance: CEFACLOR
     Indication: Cystitis
  28. AMOXICILLIN\CLAVULANATE POTASSIUM [Suspect]
     Active Substance: AMOXICILLIN\CLAVULANATE POTASSIUM
     Indication: Pneumonia
     Dosage: 1200 MILLIGRAM, 3 TIMES A DAY (3600 MILLIGRAM, QD (1200 MG, TID
     Dates: start: 20021004, end: 20021019
  29. CORTISONE ACETATE [Suspect]
     Active Substance: CORTISONE ACETATE
     Indication: Product used for unknown indication
     Dosage: 25 MILLIGRAM, TWO TIMES A DAY
     Route: 065
     Dates: start: 20020927, end: 20021103
  30. CORTISONE ACETATE [Suspect]
     Active Substance: CORTISONE ACETATE
     Dosage: 50 MILLIGRAM, ONCE A DAY
     Route: 065
     Dates: start: 20020927, end: 20021103
  31. CORTISONE ACETATE [Suspect]
     Active Substance: CORTISONE ACETATE
     Dosage: 50 MILLIGRAM
     Route: 065
  32. DIAZEPAM [Suspect]
     Active Substance: DIAZEPAM
     Indication: Agitation
     Dosage: UNK, ONCE A DAY
     Route: 065
     Dates: start: 20021009, end: 20021106
  33. DIAZEPAM [Suspect]
     Active Substance: DIAZEPAM
     Indication: Hallucination
  34. FLUDROCORTISONE [Suspect]
     Active Substance: FLUDROCORTISONE
     Indication: Product used for unknown indication
     Dosage: UNK
     Route: 065
     Dates: start: 20020927, end: 20021024
  35. HALOPERIDOL [Suspect]
     Active Substance: HALOPERIDOL
     Indication: Hallucination
     Dosage: UNK, ONCE A DAY
     Route: 065
     Dates: start: 20021009, end: 20021104
  36. HALOPERIDOL [Suspect]
     Active Substance: HALOPERIDOL
     Indication: Agitation
  37. ITRACONAZOLE [Suspect]
     Active Substance: ITRACONAZOLE
     Indication: Oral candidiasis
     Dosage: 100 MILLIGRAM
     Route: 065
     Dates: start: 20021009, end: 20021106
  38. METOCLOPRAMIDE [Suspect]
     Active Substance: METOCLOPRAMIDE
     Indication: Product used for unknown indication
     Dosage: UNK
     Route: 065
     Dates: start: 20020927, end: 20020927
  39. NYSTATIN [Suspect]
     Active Substance: NYSTATIN
     Indication: Oral candidiasis
     Dosage: 12 MILLILITER, DAILY
     Route: 065
     Dates: start: 20020927, end: 20020927
  40. NYSTATIN [Suspect]
     Active Substance: NYSTATIN
     Indication: Cystitis
     Dosage: 12 MILLILITER, DAILY
     Route: 065
     Dates: start: 20020927, end: 20021009
  41. CANRENOATE POTASSIUM [Suspect]
     Active Substance: CANRENOATE POTASSIUM
     Indication: Agitation
     Dosage: UNK
  42. CANRENOATE POTASSIUM [Suspect]
     Active Substance: CANRENOATE POTASSIUM
     Dosage: UNK
     Route: 065
  43. ALUMINUM HYDROXIDE [Suspect]
     Active Substance: ALUMINUM HYDROXIDE
     Indication: Product used for unknown indication
     Dosage: UNK
     Route: 065
  44. FUROSEMIDE [Suspect]
     Active Substance: FUROSEMIDE
     Indication: Oliguria
     Dosage: UNK
     Dates: start: 20021027, end: 20021106
  45. ALUMINUM HYDROXIDE [Concomitant]
     Active Substance: ALUMINUM HYDROXIDE
     Indication: Product used for unknown indication
     Dosage: UNK
     Dates: start: 20020927, end: 20021106
  46. ALUMINIUM HYDROXIDE# [Concomitant]
     Indication: Product used for unknown indication
     Dosage: UNK
     Route: 065
  47. CALCIUM LACTATE GLUCONATE 5 [Concomitant]
     Indication: Product used for unknown indication
     Dosage: UNK
     Route: 065
  48. CHLORPHENIRAMINE MALEATE [Concomitant]
     Active Substance: CHLORPHENIRAMINE MALEATE
     Indication: Product used for unknown indication
     Dosage: UNK
     Dates: start: 20021106, end: 20021110
  49. GENTAMICIN [Concomitant]
     Active Substance: GENTAMICIN
     Indication: Product used for unknown indication
     Dosage: UNK
     Dates: start: 20021106, end: 20021110
  50. DEXTROSE [Concomitant]
     Active Substance: DEXTROSE MONOHYDRATE
     Indication: Product used for unknown indication
     Dosage: UNK
     Dates: start: 20021106, end: 20021110
  51. HYDROCORTISONE HEMISUCCINATE ANHYDROUS [Concomitant]
     Active Substance: HYDROCORTISONE HEMISUCCINATE ANHYDROUS
     Indication: Product used for unknown indication
     Dosage: 200 MILLIGRAM
     Dates: start: 20021103, end: 20021106
  52. INSULIN NOS [Concomitant]
     Active Substance: INSULIN NOS
     Indication: Product used for unknown indication
     Dosage: UNK
     Route: 065
     Dates: start: 20021106, end: 20021110
  53. MAGNESIUM HYDROXIDE [Concomitant]
     Active Substance: MAGNESIUM HYDROXIDE
     Indication: Product used for unknown indication
     Dosage: UNK
     Route: 065
  54. PIPERACILLIN [Concomitant]
     Active Substance: PIPERACILLIN
     Indication: Product used for unknown indication
     Dosage: UNK
     Route: 065
     Dates: start: 20021102, end: 20021104
  55. POVIDONE-IODINE [Concomitant]
     Active Substance: POVIDONE-IODINE
     Indication: Product used for unknown indication
     Dosage: UNK
     Route: 065
     Dates: start: 20021106, end: 20021110
  56. RANITIDINE [Concomitant]
     Active Substance: RANITIDINE
     Indication: Product used for unknown indication
     Dosage: UNK
     Dates: start: 20021103, end: 20021110
  57. RIFAMYCIN [Concomitant]
     Active Substance: RIFAMYCIN
     Indication: Product used for unknown indication
     Dosage: UNK
     Route: 065
     Dates: start: 20021104, end: 20021106
  58. SODIUM CHLORIDE [Concomitant]
     Active Substance: SODIUM CHLORIDE
     Indication: Product used for unknown indication
     Dosage: UNK
     Route: 065

REACTIONS (24)
  - Toxic epidermal necrolysis [Fatal]
  - Septic shock [Fatal]
  - Pyrexia [Fatal]
  - Skin lesion [Fatal]
  - Blister [Fatal]
  - Skin exfoliation [Fatal]
  - Skin infection [Fatal]
  - Mouth ulceration [Fatal]
  - Rash macular [Fatal]
  - Staphylococcal sepsis [Fatal]
  - Rash erythematous [Fatal]
  - Rash [Fatal]
  - Respiratory distress [Unknown]
  - Hallucination [Unknown]
  - Polyglandular disorder [Unknown]
  - Chronic hepatitis [Unknown]
  - Agitation [Unknown]
  - Oliguria [Unknown]
  - Vitiligo [Unknown]
  - Cystitis [Unknown]
  - Hypoparathyroidism [Unknown]
  - Endocrine disorder [Unknown]
  - Candida infection [Unknown]
  - Anaemia folate deficiency [Unknown]

NARRATIVE: CASE EVENT DATE: 20021001
